FAERS Safety Report 23981137 (Version 1)
Quarter: 2024Q2

REPORT INFORMATION
  Report Type: Spontaneous
  Country: CN (occurrence: CN)
  Receive Date: 20240617
  Receipt Date: 20240617
  Transmission Date: 20240716
  Serious: Yes (Other)
  Sender: FDA-Public Use
  Company Number: CN-002147023-NVSC2024CN125051

PATIENT
  Age: 57 Year
  Sex: Male

DRUGS (2)
  1. DABRAFENIB [Suspect]
     Active Substance: DABRAFENIB
     Indication: Product used for unknown indication
     Dosage: UNK
     Route: 048
     Dates: start: 202201
  2. TRAMETINIB [Suspect]
     Active Substance: TRAMETINIB
     Indication: Product used for unknown indication
     Dosage: UNK
     Route: 048
     Dates: start: 202401

REACTIONS (8)
  - Pulmonary embolism [Recovering/Resolving]
  - Gastrointestinal disorder [Unknown]
  - Nausea [Unknown]
  - Decreased appetite [Unknown]
  - Pyrexia [Recovering/Resolving]
  - Venous thrombosis limb [Recovering/Resolving]
  - Oedema peripheral [Recovering/Resolving]
  - Intentional product use issue [Unknown]
